FAERS Safety Report 4842877-1 (Version None)
Quarter: 2005Q4

REPORT INFORMATION
  Report Type: 
  Country: None (occurrence: None)
  Receive Date: 20051130
  Receipt Date: 20051117
  Transmission Date: 20060501
  Serious: Yes (Death)
  Sender: FDA-Public Use
  Company Number: EM2005-0632

PATIENT
  Sex: Male

DRUGS (2)
  1. PROLEUKIN [Suspect]
     Indication: COLORECTAL CANCER METASTATIC
     Dosage: SEE IMAGE
     Route: 040
  2. FLUOROURACIL [Suspect]
     Indication: COLORECTAL CANCER METASTATIC
     Dosage: 600 MG/M2, QW, IV BOLUS
     Route: 040

REACTIONS (2)
  - COLORECTAL CANCER METASTATIC [None]
  - DISEASE PROGRESSION [None]
